FAERS Safety Report 16349456 (Version 4)
Quarter: 2020Q1

REPORT INFORMATION
  Report Type: Report from Study
  Country: US (occurrence: US)
  Receive Date: 20190523
  Receipt Date: 20200319
  Transmission Date: 20200409
  Serious: Yes (Life-Threatening, Hospitalization)
  Sender: FDA-Public Use
  Company Number: US-ACTELION-A-US2018-177418

PATIENT
  Age: 47 Year
  Sex: Female

DRUGS (3)
  1. REMODULIN [Concomitant]
     Active Substance: TREPROSTINIL
  2. OPSUMIT [Suspect]
     Active Substance: MACITENTAN
     Indication: PULMONARY ARTERIAL HYPERTENSION
     Dosage: 10 MG, QD
     Route: 048
     Dates: start: 20161011
  3. ADCIRCA [Concomitant]
     Active Substance: TADALAFIL
     Dosage: 40 MG, QD
     Route: 048
     Dates: start: 20161206

REACTIONS (17)
  - Bone pain [Unknown]
  - Hospitalisation [Not Recovered/Not Resolved]
  - Paraesthesia [Unknown]
  - Fatigue [Recovered/Resolved]
  - Neuropathy peripheral [Not Recovered/Not Resolved]
  - Device issue [Unknown]
  - Dyspnoea [Recovered/Resolved]
  - Dry skin [Not Recovered/Not Resolved]
  - Alopecia [Not Recovered/Not Resolved]
  - Condition aggravated [Not Recovered/Not Resolved]
  - Device leakage [Recovered/Resolved]
  - Catheter site haemorrhage [Recovered/Resolved]
  - Catheterisation cardiac abnormal [Not Recovered/Not Resolved]
  - Device occlusion [Recovered/Resolved]
  - Depression [Unknown]
  - Anaemia [Unknown]
  - Rash papular [Unknown]

NARRATIVE: CASE EVENT DATE: 201808
